FAERS Safety Report 16901805 (Version 1)
Quarter: 2019Q4

REPORT INFORMATION
  Report Type: Spontaneous
  Country: DE (occurrence: DE)
  Receive Date: 20191010
  Receipt Date: 20191010
  Transmission Date: 20200122
  Serious: Yes (Other)
  Sender: FDA-Public Use
  Company Number: DE-SUN PHARMACEUTICAL INDUSTRIES LTD-2019RR-223209

PATIENT
  Age: 34 Year
  Sex: Male
  Weight: 116 kg

DRUGS (3)
  1. BUDESONID EASYHALER 0,4 MG/DOSIS PULVER ZUR INHALATION [Concomitant]
     Indication: ASTHMA
     Dosage: 1-0-1
     Route: 055
     Dates: start: 20190730
  2. VENLAFAXINE [Suspect]
     Active Substance: VENLAFAXINE HYDROCHLORIDE
     Indication: DEPRESSION
     Dosage: 1-0-1
     Route: 048
     Dates: start: 20121220
  3. SALBUTAMOL [Concomitant]
     Active Substance: ALBUTEROL
     Indication: ASTHMA
     Dosage: NACH BEDARF ()
     Route: 055
     Dates: start: 20190409

REACTIONS (1)
  - Serum ferritin increased [Not Recovered/Not Resolved]

NARRATIVE: CASE EVENT DATE: 20190730
